FAERS Safety Report 22314919 (Version 1)
Quarter: 2023Q2

REPORT INFORMATION
  Report Type: Spontaneous
  Country: US (occurrence: None)
  Receive Date: 20230511
  Receipt Date: 20230511
  Transmission Date: 20230721
  Serious: No
  Sender: FDA-Public Use
  Company Number: None

PATIENT
  Age: 79 Year
  Sex: Female
  Weight: 63 kg

DRUGS (6)
  1. DULOXETINE HYDROCHLORIDE [Suspect]
     Active Substance: DULOXETINE HYDROCHLORIDE
     Indication: Pain
     Dosage: 1 CAPSULE AT BEDTIME ORAL
     Route: 048
  2. DEVICE [Concomitant]
     Active Substance: DEVICE
  3. LEVOTHYROXINE [Concomitant]
     Active Substance: LEVOTHYROXINE
  4. MELOXICAM [Concomitant]
     Active Substance: MELOXICAM
  5. TYLENOL [Concomitant]
     Active Substance: ACETAMINOPHEN
  6. VITAMINS [Concomitant]
     Active Substance: VITAMINS

REACTIONS (4)
  - Lethargy [None]
  - Dysuria [None]
  - Insomnia [None]
  - Restless legs syndrome [None]

NARRATIVE: CASE EVENT DATE: 20230511
